FAERS Safety Report 8552449-3 (Version None)
Quarter: 2012Q3

REPORT INFORMATION
  Report Type: 
  Country: None (occurrence: None)
  Receive Date: 20120719
  Receipt Date: 20120713
  Transmission Date: 20120928
  Serious: Yes (Other)
  Sender: FDA-Public Use
  Company Number: 2012032521

PATIENT
  Sex: Female

DRUGS (1)
  1. PRIVIGEN [Suspect]
     Dosage: INTRAVENOUS
     Route: 042

REACTIONS (2)
  - ARTERIOSPASM CORONARY [None]
  - REACTION TO DRUG EXCIPIENTS [None]
